FAERS Safety Report 9659716 (Version 2)
Quarter: 2013Q4

REPORT INFORMATION
  Report Type: Spontaneous
  Country: US (occurrence: US)
  Receive Date: 20131031
  Receipt Date: 20131220
  Transmission Date: 20140711
  Serious: No
  Sender: FDA-Public Use
  Company Number: US-PFIZER INC-2013307524

PATIENT
  Age: 47 Year
  Sex: Female
  Weight: 68.03 kg

DRUGS (1)
  1. ESTRING [Suspect]
     Indication: ATROPHIC VULVOVAGINITIS
     Dosage: UNK
     Route: 067
     Dates: start: 20131016, end: 20131017

REACTIONS (3)
  - Product quality issue [Unknown]
  - Vulvovaginal pain [Unknown]
  - Vulvovaginal discomfort [Unknown]
